FAERS Safety Report 9162719 (Version 6)
Quarter: 2013Q3

REPORT INFORMATION
  Report Type: Report from Study
  Country: BR (occurrence: BR)
  Receive Date: 20130314
  Receipt Date: 20130814
  Transmission Date: 20140515
  Serious: Yes (Hospitalization)
  Sender: FDA-Public Use
  Company Number: BR-SANOFI-AVENTIS-2013SA025081

PATIENT
  Age: 70 Year
  Sex: Male
  Weight: 83 kg

DRUGS (8)
  1. CABAZITAXEL [Suspect]
     Indication: PROSTATE CANCER METASTATIC
     Route: 042
     Dates: start: 20121004, end: 20121004
  2. CABAZITAXEL [Suspect]
     Indication: PROSTATE CANCER METASTATIC
     Route: 042
     Dates: start: 20130228, end: 20130228
  3. PREDNISONE [Suspect]
     Indication: PROSTATE CANCER METASTATIC
     Route: 048
     Dates: start: 20121004, end: 20130308
  4. CLEXANE [Concomitant]
     Indication: PROPHYLAXIS
     Route: 058
  5. OMEPRAZOLE [Concomitant]
     Indication: PROPHYLAXIS
     Route: 048
  6. HUMECTOL [Concomitant]
     Indication: PROPHYLAXIS
     Route: 048
     Dates: start: 20121009
  7. XARELTO [Concomitant]
     Indication: PROPHYLAXIS
     Route: 048
  8. HYDROXYZINE [Concomitant]
     Indication: PROPHYLAXIS
     Route: 048
     Dates: start: 20121228

REACTIONS (1)
  - Cystitis radiation [Recovered/Resolved with Sequelae]
